FAERS Safety Report 16698264 (Version 1)
Quarter: 2019Q3

REPORT INFORMATION
  Report Type: Spontaneous
  Country: US (occurrence: US)
  Receive Date: 20190813
  Receipt Date: 20190813
  Transmission Date: 20191004
  Serious: Yes (Hospitalization, Other)
  Sender: FDA-Public Use
  Company Number: US-SUNOVION-2019SUN003269

PATIENT
  Age: 38 Year
  Sex: Male

DRUGS (1)
  1. LATUDA [Suspect]
     Active Substance: LURASIDONE HYDROCHLORIDE
     Indication: BIPOLAR DISORDER
     Dosage: UNK
     Route: 048

REACTIONS (7)
  - Renal function test abnormal [Unknown]
  - Blood creatine phosphokinase increased [Unknown]
  - Liver function test abnormal [Unknown]
  - Malaise [Unknown]
  - Mental status changes [Unknown]
  - Electrocardiogram QT prolonged [Unknown]
  - Antidepressant drug level increased [Unknown]
